FAERS Safety Report 4635552-X (Version None)
Quarter: 2005Q2

REPORT INFORMATION
  Report Type: 
  Country: None (occurrence: None)
  Receive Date: 20050413
  Receipt Date: 20050328
  Transmission Date: 20051028
  Serious: Yes (Hospitalization)
  Sender: FDA-Public Use
  Company Number: CTP20050005

PATIENT
  Age: 45 Year
  Sex: Male
  Weight: 85 kg

DRUGS (2)
  1. CITALOPRAM 40 MG TABLET [Suspect]
     Dosage: 75 TABS ONCE PO
     Route: 048
     Dates: start: 20020101, end: 20020101
  2. OXYTETRACYCLINE [Concomitant]

REACTIONS (15)
  - ACINETOBACTER INFECTION [None]
  - ACUTE RESPIRATORY DISTRESS SYNDROME [None]
  - BLOOD SODIUM INCREASED [None]
  - COMA [None]
  - ELECTROCARDIOGRAM T WAVE INVERSION [None]
  - GRAND MAL CONVULSION [None]
  - HYPOXIA [None]
  - LUNG INFILTRATION [None]
  - OLIGURIA [None]
  - OVERDOSE [None]
  - PYREXIA [None]
  - RENAL FAILURE [None]
  - SUICIDE ATTEMPT [None]
  - TROPONIN I INCREASED [None]
  - WHITE BLOOD CELL COUNT ABNORMAL [None]
